FAERS Safety Report 10083891 (Version 1)
Quarter: 2014Q2

REPORT INFORMATION
  Report Type: Spontaneous
  Country: NL (occurrence: NL)
  Receive Date: 20140417
  Receipt Date: 20140417
  Transmission Date: 20141212
  Serious: Yes (Hospitalization)
  Sender: FDA-Public Use
  Company Number: NL-AMGEN-NLDSP2014027300

PATIENT
  Age: 86 Year
  Sex: Female

DRUGS (1)
  1. NEULASTA [Suspect]
     Indication: PROPHYLAXIS
     Dosage: INJVLST 10 MG/ML WWSP 0.6 ML, EVERY THREE WEEKS
     Route: 058
     Dates: start: 20140222, end: 20140414

REACTIONS (1)
  - Investigation [Unknown]
